FAERS Safety Report 5929067-6 (Version None)
Quarter: 2008Q4

REPORT INFORMATION
  Report Type: 
  Country: None (occurrence: None)
  Receive Date: 20081024
  Receipt Date: 20081016
  Transmission Date: 20090506
  Serious: Yes (Life-Threatening, Hospitalization)
  Sender: FDA-Public Use
  Company Number: IE-TYCO HEALTHCARE/MALLINCKRODT-T200801686

PATIENT

DRUGS (1)
  1. OPTIRAY 300 [Suspect]
     Indication: SCAN
     Dosage: 100 ML, SINGLE
     Route: 042
     Dates: start: 20081014, end: 20081014

REACTIONS (3)
  - ANAPHYLACTIC SHOCK [None]
  - ANGIOEDEMA [None]
  - RASH [None]
